FAERS Safety Report 5670811-3 (Version None)
Quarter: 2008Q1

REPORT INFORMATION
  Report Type: 
  Country: None (occurrence: None)
  Receive Date: 20080318
  Receipt Date: 20080304
  Transmission Date: 20080703
  Serious: Yes (Other)
  Sender: FDA-Public Use
  Company Number: CH-GENENTECH-231568

PATIENT
  Sex: Male
  Weight: 69 kg

DRUGS (3)
  1. AVASTIN [Suspect]
     Indication: COLON CANCER METASTATIC
     Dosage: UNK, UNK
     Route: 042
     Dates: start: 20060804, end: 20060911
  2. XELODA [Concomitant]
     Indication: COLON CANCER METASTATIC
     Dosage: UNK, UNK
     Route: 048
     Dates: start: 20060804
  3. ELOXATIN [Concomitant]
     Indication: COLON CANCER METASTATIC
     Dosage: UNK, UNK
     Route: 048
     Dates: start: 20060804

REACTIONS (1)
  - COLITIS ULCERATIVE [None]
